FAERS Safety Report 14879026 (Version 2)
Quarter: 2018Q2

REPORT INFORMATION
  Report Type: Spontaneous
  Country: US (occurrence: US)
  Receive Date: 20180511
  Receipt Date: 20180621
  Transmission Date: 20180711
  Serious: No
  Sender: FDA-Public Use
  Company Number: US-ASTRAZENECA-2018SE49645

PATIENT
  Age: 724 Month
  Sex: Female
  Weight: 91.9 kg

DRUGS (5)
  1. CIPROFLOXACIN HYDROCHLORIDE. [Concomitant]
     Active Substance: CIPROFLOXACIN HYDROCHLORIDE
     Indication: VOMITING
  2. SULFONAMIDE [Concomitant]
     Active Substance: UNSPECIFIED INGREDIENT
  3. PRISTIQ EXTENDED-RELEASE [Concomitant]
     Active Substance: DESVENLAFAXINE SUCCINATE
  4. CIPROFLOXACIN HYDROCHLORIDE. [Concomitant]
     Active Substance: CIPROFLOXACIN HYDROCHLORIDE
     Indication: DIARRHOEA
  5. BYDUREON BCISE [Suspect]
     Active Substance: EXENATIDE
     Dosage: 2 MG/0.58 ML, UNKNOWN
     Route: 058
     Dates: start: 20180326, end: 20180424

REACTIONS (7)
  - Injection site haemorrhage [Unknown]
  - Device leakage [Unknown]
  - Rash [Recovered/Resolved]
  - Injection site mass [Recovered/Resolved]
  - Injection site erythema [Unknown]
  - Injection site pain [Unknown]
  - Injection site pruritus [Recovered/Resolved]

NARRATIVE: CASE EVENT DATE: 201804
